FAERS Safety Report 5355300-8 (Version None)
Quarter: 2007Q2

REPORT INFORMATION
  Report Type: 
  Country: None (occurrence: None)
  Receive Date: 20070613
  Receipt Date: 20070612
  Transmission Date: 20071010
  Serious: Yes (Hospitalization)
  Sender: FDA-Public Use
  Company Number: NL-BRISTOL-MYERS SQUIBB COMPANY-13810643

PATIENT
  Age: 12 Year
  Sex: Male

DRUGS (8)
  1. DASATINIB [Suspect]
     Indication: CHRONIC MYELOID LEUKAEMIA
     Dates: start: 20070604
  2. VORICONAZOLE [Concomitant]
  3. CO-TRIMOXAZOLE [Concomitant]
  4. ONDANSETRON [Concomitant]
  5. CEFTAZIDIME [Concomitant]
  6. TEICOPLANIN [Concomitant]
  7. VITAMIN K [Concomitant]
  8. PARACETAMOL [Concomitant]

REACTIONS (3)
  - DYSPNOEA [None]
  - HAEMATEMESIS [None]
  - OEDEMA [None]
